FAERS Safety Report 14692488 (Version 3)
Quarter: 2018Q2

REPORT INFORMATION
  Report Type: Spontaneous
  Country: US (occurrence: US)
  Receive Date: 20180329
  Receipt Date: 20180511
  Transmission Date: 20180711
  Serious: Yes (Other)
  Sender: FDA-Public Use
  Company Number: US-PFIZER INC-2018125830

PATIENT
  Age: 56 Year
  Sex: Female
  Weight: 88 kg

DRUGS (4)
  1. IBRANCE [Suspect]
     Active Substance: PALBOCICLIB
     Indication: BREAST CANCER STAGE IV
  2. LETROZOLE. [Suspect]
     Active Substance: LETROZOLE
     Dosage: 2.5 MG, UNK
     Dates: start: 201611
  3. LETROZOLE. [Suspect]
     Active Substance: LETROZOLE
     Indication: BONE CANCER METASTATIC
     Dosage: 1 DF, DAILY
  4. IBRANCE [Suspect]
     Active Substance: PALBOCICLIB
     Indication: BONE CANCER METASTATIC
     Dosage: 125 MG, CYCLIC (ONE A DAY FOR THREE WEEKS AND OFF ONE WEEK)
     Dates: start: 201611

REACTIONS (2)
  - Neutrophil count abnormal [Unknown]
  - Arthralgia [Recovering/Resolving]

NARRATIVE: CASE EVENT DATE: 201702
